FAERS Safety Report 12244699 (Version 1)
Quarter: 2016Q2

REPORT INFORMATION
  Report Type: Spontaneous
  Country: US (occurrence: None)
  Receive Date: 20160406
  Receipt Date: 20160406
  Transmission Date: 20160815
  Serious: Yes (Other)
  Sender: FDA-Public Use
  Company Number: None

PATIENT
  Age: 64 Year
  Sex: Female
  Weight: 40.82 kg

DRUGS (5)
  1. VITAMIN D3 [Concomitant]
     Active Substance: CHOLECALCIFEROL
  2. LEVOFLOXACIN 500 MG. GENERIC FOR LEVAQUIN 500 MG [Suspect]
     Active Substance: LEVOFLOXACIN
     Indication: ARTHROPATHY
     Dosage: 1 PILL ONCE A DAY BY MOUTH
     Route: 048
     Dates: start: 20160316, end: 20160319
  3. TOPROL XL [Concomitant]
     Active Substance: METOPROLOL SUCCINATE
  4. LEVOFLOXACIN 500 MG. GENERIC FOR LEVAQUIN 500 MG [Suspect]
     Active Substance: LEVOFLOXACIN
     Indication: SURGERY
     Dosage: 1 PILL ONCE A DAY BY MOUTH
     Route: 048
     Dates: start: 20160316, end: 20160319
  5. VITAMIN B12 [Concomitant]
     Active Substance: CYANOCOBALAMIN

REACTIONS (4)
  - Blood pressure increased [None]
  - Haematochezia [None]
  - Drug hypersensitivity [None]
  - Renal pain [None]

NARRATIVE: CASE EVENT DATE: 20160319
